FAERS Safety Report 18580471 (Version 1)
Quarter: 2020Q4

REPORT INFORMATION
  Report Type: Spontaneous
  Country: US (occurrence: US)
  Receive Date: 20201204
  Receipt Date: 20201204
  Transmission Date: 20210114
  Serious: Yes (Hospitalization, Other)
  Sender: FDA-Public Use
  Company Number: US-009507513-2011USA015858

PATIENT
  Age: 46 Year
  Sex: Female
  Weight: 108.9 kg

DRUGS (14)
  1. SEROQUEL [Suspect]
     Active Substance: QUETIAPINE FUMARATE
     Indication: MAJOR DEPRESSION
     Dosage: 400 MILLIGRAM, QD
     Route: 048
     Dates: start: 200607, end: 20131211
  2. IBUPROFEN. [Concomitant]
     Active Substance: IBUPROFEN
     Indication: OSTEOARTHRITIS
     Dosage: UNK UNK, QD
  3. WELLBUTRIN [Concomitant]
     Active Substance: BUPROPION HYDROCHLORIDE
     Indication: MAJOR DEPRESSION
     Dosage: 300 MILLIGRAM, QD
     Dates: start: 200607
  4. ZITHROMAX [Concomitant]
     Active Substance: AZITHROMYCIN DIHYDRATE
     Indication: TOOTH DISORDER
  5. FENOFIBRATE. [Concomitant]
     Active Substance: FENOFIBRATE
     Indication: BLOOD TRIGLYCERIDES ABNORMAL
     Dosage: 160 MILLIGRAM
     Dates: start: 2007
  6. IBUPROFEN. [Concomitant]
     Active Substance: IBUPROFEN
     Indication: PLANTAR FASCIITIS
     Dosage: UNK UNK, QD
  7. MELOXICAM. [Concomitant]
     Active Substance: MELOXICAM
     Indication: LIMB DISCOMFORT
     Dosage: 15 MILLIGRAM
     Dates: start: 2013
  8. SEROQUEL [Suspect]
     Active Substance: QUETIAPINE FUMARATE
     Dosage: 400 MILLIGRAM, QD
     Route: 048
  9. SEROQUEL [Suspect]
     Active Substance: QUETIAPINE FUMARATE
     Dosage: 400 MILLIGRAM, QD
     Route: 048
     Dates: start: 200607, end: 20131211
  10. METFORMIN [Concomitant]
     Active Substance: METFORMIN HYDROCHLORIDE
     Dosage: 200 MILLIGRAM, QD
  11. SEROQUEL [Suspect]
     Active Substance: QUETIAPINE FUMARATE
     Indication: INSOMNIA
     Dosage: 400 MILLIGRAM, QD
     Route: 048
     Dates: start: 200607, end: 20131211
  12. PRINIVIL [Suspect]
     Active Substance: LISINOPRIL
     Indication: RENAL DISORDER
     Dosage: 2.5 MILLIGRAM, QD
     Route: 048
     Dates: start: 2013
  13. VITAMIN D (UNSPECIFIED) [Concomitant]
     Active Substance: VITAMIN D NOS
     Dosage: UNK UNK, QD
  14. NOVOLOG [Concomitant]
     Active Substance: INSULIN ASPART
     Dosage: SLIDING SCALE 70 30

REACTIONS (21)
  - Diarrhoea [Recovered/Resolved]
  - Toothache [Recovered/Resolved]
  - Ear pain [Recovered/Resolved]
  - Weight decreased [Unknown]
  - Cellulitis [Recovered/Resolved]
  - Nausea [Recovered/Resolved]
  - Osteoarthritis [Not Recovered/Not Resolved]
  - Malaise [Unknown]
  - Product dose omission issue [Not Recovered/Not Resolved]
  - Abscess [Recovered/Resolved]
  - Insomnia [Unknown]
  - Tooth abscess [Recovered/Resolved]
  - Product use in unapproved indication [Unknown]
  - Mastication disorder [Recovered/Resolved]
  - Osteoarthritis [Unknown]
  - Dysphagia [Recovered/Resolved]
  - Dizziness [Recovered/Resolved]
  - White blood cell count increased [Recovered/Resolved]
  - Swelling face [Recovered/Resolved]
  - Feeding disorder [Recovered/Resolved]
  - Plantar fasciitis [Unknown]

NARRATIVE: CASE EVENT DATE: 200607
